FAERS Safety Report 12677306 (Version 2)
Quarter: 2016Q3

REPORT INFORMATION
  Report Type: Spontaneous
  Country: BR (occurrence: BR)
  Receive Date: 20160823
  Receipt Date: 20160920
  Transmission Date: 20161109
  Serious: Yes (Other)
  Sender: FDA-Public Use
  Company Number: BR-PFIZER INC-2016393920

PATIENT
  Age: 4 Month
  Sex: Male
  Weight: 4 kg

DRUGS (9)
  1. PRECEDEX [Suspect]
     Active Substance: DEXMEDETOMIDINE HYDROCHLORIDE
     Indication: OFF LABEL USE
     Dosage: 0.012 ML/MIN, UNK
     Dates: start: 20160713
  2. PRECEDEX [Suspect]
     Active Substance: DEXMEDETOMIDINE HYDROCHLORIDE
     Dosage: 0.017 ML/MIN, UNK
  3. CEFTRIAXONE. [Concomitant]
     Active Substance: CEFTRIAXONE
     Dosage: 440 MG, DAILY
     Route: 042
     Dates: start: 20160712
  4. ESMERON [Concomitant]
     Active Substance: ROCURONIUM BROMIDE
     Dosage: 4 MG, DAILY
     Route: 042
     Dates: start: 20160712
  5. FLIXOTIDE [Concomitant]
     Active Substance: FLUTICASONE PROPIONATE
     Dosage: 100 UG, DAILY
     Route: 055
     Dates: start: 20160712
  6. OPRAZON /00661201/ [Concomitant]
     Dosage: DAILY DOSE 4.5 MG
     Route: 042
     Dates: start: 20160713
  7. PRECEDEX [Suspect]
     Active Substance: DEXMEDETOMIDINE HYDROCHLORIDE
     Indication: SEDATIVE THERAPY
     Dosage: 0.008 ML/MIN, UNK
     Route: 042
     Dates: start: 20160712, end: 20160721
  8. KETAMIN S [Concomitant]
     Dosage: 5 MG, DAILY
     Route: 042
     Dates: start: 20160808
  9. MAGNEVISTAN [Concomitant]
     Active Substance: GADOPENTETATE DIMEGLUMINE
     Dosage: 1 ML, DAILY
     Route: 042
     Dates: start: 20160713, end: 20160713

REACTIONS (4)
  - Bradycardia [Recovered/Resolved]
  - Hypotension [Recovered/Resolved]
  - Hypothermia [Recovered/Resolved]
  - Product use issue [Recovered/Resolved]

NARRATIVE: CASE EVENT DATE: 20160712
